FAERS Safety Report 17215706 (Version 2)
Quarter: 2020Q1

REPORT INFORMATION
  Report Type: Spontaneous
  Country: JP (occurrence: JP)
  Receive Date: 20191230
  Receipt Date: 20200110
  Transmission Date: 20200409
  Serious: Yes (Other)
  Sender: FDA-Public Use
  Company Number: JP-GILEAD-2019-0444131

PATIENT
  Age: 5 Decade
  Sex: Male

DRUGS (4)
  1. ENTECAVIR. [Concomitant]
     Active Substance: ENTECAVIR
     Indication: HEPATITIS B VIRUS TEST POSITIVE
     Route: 048
  2. HEPSERA [Suspect]
     Active Substance: ADEFOVIR DIPIVOXIL
     Indication: HEPATITIS B VIRUS TEST POSITIVE
     Route: 048
  3. ZEFIX [Suspect]
     Active Substance: LAMIVUDINE
     Indication: HEPATITIS B VIRUS TEST POSITIVE
     Route: 048
  4. TENOZET [Concomitant]
     Active Substance: TENOFOVIR DISOPROXIL FUMARATE
     Indication: HEPATITIS B
     Route: 048

REACTIONS (5)
  - Hypophosphataemia [Recovering/Resolving]
  - Hypouricaemia [Unknown]
  - Acquired aminoaciduria [Unknown]
  - Glucose urine [Unknown]
  - Fanconi syndrome acquired [Unknown]
